FAERS Safety Report 12917555 (Version 1)
Quarter: 2016Q4

REPORT INFORMATION
  Report Type: Report from Study
  Country: MX (occurrence: MX)
  Receive Date: 20161107
  Receipt Date: 20161107
  Transmission Date: 20170207
  Serious: Yes (Other)
  Sender: FDA-Public Use
  Company Number: PHHY2016MX150669

PATIENT
  Sex: Female

DRUGS (1)
  1. STALEVO [Suspect]
     Active Substance: CARBIDOPA\ENTACAPONE\LEVODOPA
     Indication: PARKINSON^S DISEASE
     Dosage: 3 DF (200 MG OF ENTACAPONE, 200 MG OF LEVODOPA AND 50 MG OF CARBIDOPA), QD
     Route: 065

REACTIONS (2)
  - Speech disorder [Unknown]
  - Hypotonia [Unknown]
